FAERS Safety Report 9712333 (Version 1)
Quarter: 2013Q4

REPORT INFORMATION
  Report Type: Spontaneous
  Country: US (occurrence: US)
  Receive Date: 20131126
  Receipt Date: 20131126
  Transmission Date: 20140711
  Serious: No
  Sender: FDA-Public Use
  Company Number: US-BRISTOL-MYERS SQUIBB COMPANY-19162338

PATIENT
  Age: 72 Year
  Sex: Female

DRUGS (1)
  1. BYDUREON [Suspect]
     Dosage: LAST DOSE ON JUL13
     Dates: start: 20130608

REACTIONS (3)
  - Flatulence [Not Recovered/Not Resolved]
  - Dyspepsia [Not Recovered/Not Resolved]
  - Cough [Unknown]
